FAERS Safety Report 9828291 (Version 3)
Quarter: 2014Q2

REPORT INFORMATION
  Report Type: Spontaneous
  Country: US (occurrence: US)
  Receive Date: 20140117
  Receipt Date: 20140404
  Transmission Date: 20141212
  Serious: No
  Sender: FDA-Public Use
  Company Number: US-PFIZER INC-2014012954

PATIENT
  Age: 44 Year
  Sex: Female

DRUGS (9)
  1. LIPITOR [Suspect]
     Indication: BLOOD CHOLESTEROL INCREASED
     Dosage: 80 MG, DAILY
     Route: 048
     Dates: start: 2009, end: 2011
  2. SYNTHROID [Concomitant]
     Dosage: 300 UG, 1X/DAY
     Route: 048
     Dates: start: 20111107
  3. SYNTHROID [Concomitant]
     Dosage: 25 UG, 1X/DAY
     Route: 048
     Dates: start: 20120824
  4. GLYBURIDE [Concomitant]
     Dosage: UNK
  5. METFORMIN [Concomitant]
     Dosage: UNK
  6. SINGULAIR [Concomitant]
     Dosage: 10 MG, 1X/DAY AT BEDTIME
     Route: 048
     Dates: start: 20110302
  7. LOVAZA [Concomitant]
     Dosage: 1 G, 2 CAPS TWICE A DAY
     Dates: start: 20111219
  8. PROTONIX [Concomitant]
     Dosage: 40 MG, 2X/DAY
     Route: 048
     Dates: start: 20111219
  9. ASPIRIN [Concomitant]
     Dosage: 81 MG, DAILY
     Route: 048

REACTIONS (3)
  - Drug hypersensitivity [Unknown]
  - Myalgia [Unknown]
  - Pain [Recovered/Resolved]
